FAERS Safety Report 25881720 (Version 1)
Quarter: 2025Q4

REPORT INFORMATION
  Report Type: Spontaneous
  Country: US (occurrence: US)
  Receive Date: 20251005
  Receipt Date: 20251005
  Transmission Date: 20260118
  Serious: No
  Sender: ROCHE
  Company Number: US-ROCHE-10000401314

PATIENT
  Sex: Male
  Weight: 90.72 kg

DRUGS (6)
  1. VABYSMO [Suspect]
     Active Substance: FARICIMAB-SVOA
     Indication: Neovascular age-related macular degeneration
     Dosage: 1 SHOT EVERY 5-6 WEEKS
     Route: 050
  2. VABYSMO [Suspect]
     Active Substance: FARICIMAB-SVOA
  3. VABYSMO [Suspect]
     Active Substance: FARICIMAB-SVOA
  4. VABYSMO [Suspect]
     Active Substance: FARICIMAB-SVOA
  5. MINERALS\VITAMINS [Concomitant]
     Active Substance: MINERALS\VITAMINS
     Indication: Glaucoma
     Route: 048
  6. LATANOPROST [Concomitant]
     Active Substance: LATANOPROST
     Dosage: 1 DROP EVERY NIGHT IN BOTH EYES
     Route: 047

REACTIONS (2)
  - Off label use [Unknown]
  - No adverse event [Unknown]
